FAERS Safety Report 5181118-5 (Version None)
Quarter: 2006Q4

REPORT INFORMATION
  Report Type: 
  Country: None (occurrence: None)
  Receive Date: 20061218
  Receipt Date: 20061218
  Transmission Date: 20070319
  Serious: Yes (Life-Threatening)
  Sender: FDA-Public Use
  Company Number: None

PATIENT
  Sex: Female
  Weight: 53.0709 kg

DRUGS (6)
  1. CEPHALEXIN [Suspect]
     Indication: HERPES SIMPLEX
     Dates: start: 20060920, end: 20061005
  2. CEPHALEXIN [Suspect]
     Indication: LOCALISED INFECTION
     Dates: start: 20060920, end: 20061005
  3. CEPHALEXIN [Suspect]
     Indication: STAPHYLOCOCCAL SKIN INFECTION
     Dates: start: 20060920, end: 20061005
  4. CEPHALEXIN [Suspect]
     Indication: HERPES SIMPLEX
     Dates: start: 20061214, end: 20061215
  5. CEPHALEXIN [Suspect]
     Indication: LOCALISED INFECTION
     Dates: start: 20061214, end: 20061215
  6. CEPHALEXIN [Suspect]
     Indication: STAPHYLOCOCCAL SKIN INFECTION
     Dates: start: 20061214, end: 20061215

REACTIONS (7)
  - DIZZINESS [None]
  - HERPES SIMPLEX [None]
  - HYPERSENSITIVITY [None]
  - LOCALISED INFECTION [None]
  - NAUSEA [None]
  - RASH GENERALISED [None]
  - SELF-MEDICATION [None]
